FAERS Safety Report 4980809-6 (Version None)
Quarter: 2006Q2

REPORT INFORMATION
  Report Type: 
  Country: None (occurrence: None)
  Receive Date: 20060424
  Receipt Date: 20060330
  Transmission Date: 20061013
  Serious: Yes (Hospitalization, Other)
  Sender: FDA-Public Use
  Company Number: US-MERCK-0603USA04686

PATIENT
  Sex: Female
  Weight: 100 kg

DRUGS (7)
  1. VIOXX [Suspect]
     Indication: CARPAL TUNNEL SYNDROME
     Route: 048
     Dates: start: 20000201, end: 20030301
  2. NIFEDIPINE [Concomitant]
     Route: 065
  3. LEVOFLOXACIN [Concomitant]
     Route: 065
  4. METRONIDAZOLE [Concomitant]
     Route: 065
  5. MORPHINE [Concomitant]
     Route: 065
  6. METHYLPREDNISOLONE [Concomitant]
     Route: 065
  7. [THERAPY UNSPECIFIED] [Concomitant]
     Route: 065

REACTIONS (19)
  - BACK INJURY [None]
  - CARPAL TUNNEL DECOMPRESSION [None]
  - CEREBRAL THROMBOSIS [None]
  - CEREBROVASCULAR DISORDER [None]
  - CONGESTIVE CARDIOMYOPATHY [None]
  - DYSPNOEA [None]
  - GANGRENE [None]
  - HEMIPARESIS [None]
  - HYPOAESTHESIA [None]
  - INJURY [None]
  - JOINT INJURY [None]
  - MITRAL VALVE INCOMPETENCE [None]
  - PRODUCTIVE COUGH [None]
  - ROAD TRAFFIC ACCIDENT [None]
  - SYSTEMIC LUPUS ERYTHEMATOSUS [None]
  - THROMBOSIS [None]
  - TOE AMPUTATION [None]
  - VASCULITIS [None]
  - VENTRICULAR DYSFUNCTION [None]
